FAERS Safety Report 12568347 (Version 1)
Quarter: 2016Q3

REPORT INFORMATION
  Report Type: Spontaneous
  Country: US (occurrence: US)
  Receive Date: 20160718
  Receipt Date: 20160718
  Transmission Date: 20161109
  Serious: Yes (Other)
  Sender: FDA-Public Use
  Company Number: US-AMGEN-USASP2016091376

PATIENT
  Age: 64 Year
  Sex: Male
  Weight: 103.4 kg

DRUGS (1)
  1. ENBREL [Suspect]
     Active Substance: ETANERCEPT
     Indication: ANKYLOSING SPONDYLITIS
     Dosage: 50 MG, QWK
     Route: 058
     Dates: start: 20160613

REACTIONS (2)
  - Bronchitis [Recovered/Resolved]
  - Keratomileusis [Recovered/Resolved]

NARRATIVE: CASE EVENT DATE: 20160624
